FAERS Safety Report 10151464 (Version 2)
Quarter: 2014Q2

REPORT INFORMATION
  Report Type: Spontaneous
  Country: ES (occurrence: ES)
  Receive Date: 20140502
  Receipt Date: 20140625
  Transmission Date: 20141212
  Serious: Yes (Death, Hospitalization)
  Sender: FDA-Public Use
  Company Number: ES-ABBVIE-14P-144-1231232-00

PATIENT
  Age: 31 Year
  Sex: Male

DRUGS (3)
  1. HUMIRA [Suspect]
     Indication: CROHN^S DISEASE
     Route: 058
     Dates: start: 200809, end: 201401
  2. URSOBILANE [Concomitant]
     Indication: CHOLANGITIS SCLEROSING
     Route: 048
     Dates: start: 201206, end: 201401
  3. KILOR [Concomitant]
     Indication: PRODUCT USED FOR UNKNOWN INDICATION
     Route: 048
     Dates: start: 2012

REACTIONS (3)
  - Colon cancer metastatic [Fatal]
  - Abdominal pain [Unknown]
  - Cholangitis sclerosing [Not Recovered/Not Resolved]
